FAERS Safety Report 4700050-1 (Version None)
Quarter: 2005Q2

REPORT INFORMATION
  Report Type: 
  Country: None (occurrence: None)
  Receive Date: 20050627
  Receipt Date: 20050622
  Transmission Date: 20051028
  Serious: Yes (Disabling, Other)
  Sender: FDA-Public Use
  Company Number: US-GLAXOSMITHKLINE-A0563864A

PATIENT
  Sex: Male

DRUGS (1)
  1. ADVAIR [Suspect]
     Indication: ASTHMA
     Route: 055

REACTIONS (6)
  - ASTHMA [None]
  - DIFFICULTY IN WALKING [None]
  - DISABILITY [None]
  - DYSPNOEA [None]
  - LUNG DISORDER [None]
  - RESPIRATORY DISORDER [None]
